FAERS Safety Report 7569070-6 (Version None)
Quarter: 2011Q2

REPORT INFORMATION
  Report Type: 
  Country: None (occurrence: None)
  Receive Date: 20110623
  Receipt Date: 20110621
  Transmission Date: 20111010
  Serious: Yes (Death)
  Sender: FDA-Public Use
  Company Number: US-B.I. PHARMACEUTICALS,INC./RIDGEFIELD-2011-BP-13414BP

PATIENT
  Sex: Male

DRUGS (8)
  1. LIPITOR [Concomitant]
     Dosage: 40 MG
  2. JANUVIA [Concomitant]
     Dosage: 100 MG
  3. GLIPIZIDE [Concomitant]
     Dosage: 20 MG
  4. ALLOPURINOL [Concomitant]
     Dosage: 100 MG
  5. LISINOPRIL [Concomitant]
     Dosage: 20 MG
  6. PRADAXA [Suspect]
     Indication: ATRIAL FIBRILLATION
     Dosage: 150 MG
     Dates: start: 20110506, end: 20110509
  7. TOPROL-XL [Concomitant]
     Dosage: 200 MG
  8. LEVOXYL [Concomitant]
     Dosage: 75 MCG

REACTIONS (1)
  - DEATH [None]
